FAERS Safety Report 6022042-5 (Version None)
Quarter: 2008Q4

REPORT INFORMATION
  Report Type: 
  Country: None (occurrence: None)
  Receive Date: 20081229
  Receipt Date: 20081223
  Transmission Date: 20090506
  Serious: Yes (Death)
  Sender: FDA-Public Use
  Company Number: US-ASTRAZENECA-2008AC03243

PATIENT
  Age: 39 Year
  Sex: Female

DRUGS (11)
  1. QUETIAPINE FUMARATE [Suspect]
     Route: 048
  2. ACETAMINOPHEN/OPIOID [Suspect]
     Route: 048
  3. TRAMADOL HCL [Suspect]
     Route: 048
  4. CARISOPRODOL [Suspect]
     Route: 048
  5. TRAZODONE [Suspect]
     Route: 048
  6. DULOXETINE [Suspect]
     Route: 048
  7. FEXOFENADINE [Suspect]
     Route: 048
  8. NAPROXEN [Suspect]
     Route: 048
  9. THYROID PREPARATION [Suspect]
     Route: 048
  10. CLONAZEPAM [Suspect]
     Route: 048
  11. ETHANOL [Suspect]
     Route: 048

REACTIONS (1)
  - COMPLETED SUICIDE [None]
